FAERS Safety Report 8814415 (Version 1)
Quarter: 2012Q4

REPORT INFORMATION
  Report Type: Spontaneous
  Country: US (occurrence: None)
  Receive Date: 20120925
  Receipt Date: 20120925
  Transmission Date: 20130627
  Serious: Yes (Other)
  Sender: FDA-Public Use
  Company Number: VAL_00854_2012

PATIENT
  Sex: Female

DRUGS (17)
  1. METOPROLOL SUCCINATE [Suspect]
     Indication: PRODUCT USED FOR UNKNOWN INDICATION
  2. TRICOR [Concomitant]
  3. OMEPRAZOLE (UNKNOWN) [Concomitant]
  4. TYLENOL /00020001/ [Concomitant]
  5. ASPIRIN (UNKNOWN) [Concomitant]
  6. VITAMIN B-12 (UNKNOWN) [Concomitant]
  7. MULTIVITAMIN /02358601/ [Concomitant]
  8. OCUVITE /01053801/ [Concomitant]
  9. OLIVE OIL (UNKNOWN) [Concomitant]
  10. FISH OIL [Concomitant]
  11. FLAXSEED OIL [Concomitant]
  12. ALIGN [Concomitant]
  13. DOPOLAX [Concomitant]
  14. BOOST [Concomitant]
  15. DESONIDE [Concomitant]
  16. SALONPAS /00735901/ [Concomitant]
  17. RITUXAN [Concomitant]

REACTIONS (2)
  - Neoplasm malignant [None]
  - Osteoporosis [None]
